FAERS Safety Report 17453570 (Version 3)
Quarter: 2020Q3

REPORT INFORMATION
  Report Type: Spontaneous
  Country: CN (occurrence: CN)
  Receive Date: 20200224
  Receipt Date: 20200323
  Transmission Date: 20201104
  Serious: Yes (Death, Hospitalization)
  Sender: FDA-Public Use
  Company Number: CN-CELGENEUS-CHN-20200207633

PATIENT
  Age: 70 Year
  Sex: Male
  Weight: 65 kg

DRUGS (11)
  1. EUCALYPTUS OIL [Concomitant]
     Active Substance: EUCALYPTUS OIL
     Indication: PRODUCTIVE COUGH
     Dosage: .9 GRAM
     Route: 048
     Dates: start: 20200203, end: 20200206
  2. BROMHEXINE HYDROCHLORIDE [Concomitant]
     Active Substance: BROMHEXINE HYDROCHLORIDE
     Indication: PROPHYLAXIS
     Dosage: 4 MILLIGRAM
     Route: 041
     Dates: start: 20200203, end: 20200206
  3. ABRAXANE [Suspect]
     Active Substance: PACLITAXEL
     Indication: NON-SMALL CELL LUNG CANCER METASTATIC
     Dosage: 100 MILLIGRAM/SQ. METER
     Route: 041
     Dates: start: 20190927, end: 20200115
  4. CARBAZ [Concomitant]
     Indication: HAEMORRHAGE PROPHYLAXIS
     Dosage: 80 MILLIGRAM
     Route: 041
     Dates: start: 20200203, end: 20200206
  5. MEGESTROL ACETATE. [Concomitant]
     Active Substance: MEGESTROL ACETATE
     Indication: DECREASED APPETITE
     Dosage: 240 MILLIGRAM
     Route: 048
     Dates: start: 20200203, end: 20200206
  6. POLYETHYLENE GLYCOL [Concomitant]
     Active Substance: POLYETHYLENE GLYCOLS
     Indication: CONSTIPATION PROPHYLAXIS
     Dosage: 41.1 GRAM
     Route: 041
     Dates: start: 20200204, end: 20200206
  7. THEOPHYLLINE [Concomitant]
     Active Substance: THEOPHYLLINE ANHYDROUS
     Indication: WHEEZING
     Dosage: .1 GRAM
     Route: 048
     Dates: start: 20200203, end: 20200206
  8. SERPLULIMAB. [Suspect]
     Active Substance: SERPLULIMAB
     Indication: NON-SMALL CELL LUNG CANCER METASTATIC
     Dosage: 4.5 MILLIGRAM/KILOGRAM
     Route: 041
     Dates: start: 20190927
  9. SERPLULIMAB. [Suspect]
     Active Substance: SERPLULIMAB
     Dosage: 4.5 MILLIGRAM/KILOGRAM
     Route: 041
     Dates: start: 20200204, end: 20200204
  10. CARBOPLATIN. [Suspect]
     Active Substance: CARBOPLATIN
     Indication: NON-SMALL CELL LUNG CANCER METASTATIC
     Dosage: AUC=5
     Route: 041
     Dates: start: 20190927, end: 20200108
  11. ACETYLCYSTEINE. [Concomitant]
     Active Substance: ACETYLCYSTEINE
     Indication: PROPHYLAXIS
     Dosage: 1.2 GRAM
     Route: 048
     Dates: start: 20200203, end: 20200206

REACTIONS (1)
  - Pneumonia [Fatal]

NARRATIVE: CASE EVENT DATE: 20200209
